FAERS Safety Report 6115811-4 (Version None)
Quarter: 2009Q1

REPORT INFORMATION
  Report Type: 
  Country: None (occurrence: None)
  Receive Date: 20090313
  Receipt Date: 20090122
  Transmission Date: 20090719
  Serious: No
  Sender: FDA-Public Use
  Company Number: US-ABBOTT-09P-163-0499554-00

PATIENT
  Sex: Female
  Weight: 90.8 kg

DRUGS (9)
  1. HUMIRA [Suspect]
     Indication: RHEUMATOID ARTHRITIS
     Route: 058
     Dates: start: 20081112
  2. FOLIC ACID [Concomitant]
     Indication: DRUG USE FOR UNKNOWN INDICATION
     Route: 048
  3. ALENVRONOTE SODIUM [Concomitant]
     Indication: OSTEOPOROSIS
     Route: 048
  4. TREXALL [Concomitant]
     Indication: RHEUMATOID ARTHRITIS
     Route: 048
  5. ASPIRIN [Concomitant]
     Indication: HYPERTENSION
     Route: 048
  6. ROPINIROLE [Concomitant]
     Indication: PAIN IN EXTREMITY
     Route: 048
  7. PHENOBARBITAL TAB [Concomitant]
     Indication: EPILEPSY
     Dosage: TWO TABS TWICE A DAY
     Route: 048
  8. DILANTIN [Concomitant]
     Indication: EPILEPSY
     Dosage: TWO TABLETS TWICE A DAY
     Route: 048
  9. METOPROLOL TARTRATE [Concomitant]
     Indication: HYPERTENSION
     Route: 048

REACTIONS (1)
  - PAIN [None]
